FAERS Safety Report 5931571-1 (Version None)
Quarter: 2008Q4

REPORT INFORMATION
  Report Type: 
  Country: None (occurrence: None)
  Receive Date: 20081023
  Receipt Date: 20060519
  Transmission Date: 20090506
  Serious: Yes (Hospitalization, Other)
  Sender: FDA-Public Use
  Company Number: 2006AL002087

PATIENT
  Age: 70 Year
  Sex: Female

DRUGS (3)
  1. METFORMIN HYDROCHLORIDE [Suspect]
     Indication: TYPE 2 DIABETES MELLITUS
     Dosage: PO
     Route: 048
  2. ACE INHIBITOR [Concomitant]
  3. NSAIDS UNSPECIFIED [Concomitant]

REACTIONS (4)
  - LACTIC ACIDOSIS [None]
  - LETHARGY [None]
  - RENAL FAILURE ACUTE [None]
  - SOMNOLENCE [None]
